FAERS Safety Report 6328552-5 (Version None)
Quarter: 2009Q3

REPORT INFORMATION
  Report Type: 
  Country: None (occurrence: None)
  Receive Date: 20090825
  Receipt Date: 20090825
  Transmission Date: 20100115
  Serious: Yes (Other)
  Sender: FDA-Public Use
  Company Number: None

PATIENT
  Sex: Female
  Weight: 73.9363 kg

DRUGS (2)
  1. XOLAIR [Suspect]
     Indication: ASTHMA
     Dosage: 375 MG Q 2 WKS IM
     Route: 030
     Dates: start: 20070501
  2. XOLAIR [Suspect]
     Indication: HYPERSENSITIVITY
     Dosage: 375 MG Q 2 WKS IM
     Route: 030
     Dates: start: 20070501

REACTIONS (3)
  - ARTERIAL OCCLUSIVE DISEASE [None]
  - BLINDNESS UNILATERAL [None]
  - VENOUS OCCLUSION [None]
